FAERS Safety Report 13488136 (Version 1)
Quarter: 2017Q2

REPORT INFORMATION
  Report Type: Spontaneous
  Country: US (occurrence: US)
  Receive Date: 20170426
  Receipt Date: 20170426
  Transmission Date: 20170830
  Serious: No
  Sender: FDA-Public Use
  Company Number: US-ALKERMES INC.-ALK-2016-002893

PATIENT
  Age: 65 Year
  Sex: Male

DRUGS (1)
  1. VIVITROL [Suspect]
     Active Substance: NALTREXONE
     Indication: PRODUCT USED FOR UNKNOWN INDICATION
     Dosage: 380 MG, QMO
     Route: 030
     Dates: start: 201605

REACTIONS (8)
  - Feeling abnormal [Unknown]
  - Influenza like illness [Unknown]
  - Injection site pain [Unknown]
  - Disturbance in attention [Unknown]
  - Hypersomnia [Unknown]
  - Injection site reaction [Unknown]
  - Balance disorder [Unknown]
  - Dysstasia [Unknown]

NARRATIVE: CASE EVENT DATE: 201608
